FAERS Safety Report 6478550-6 (Version None)
Quarter: 2009Q4

REPORT INFORMATION
  Report Type: 
  Country: None (occurrence: None)
  Receive Date: 20091207
  Receipt Date: 20091123
  Transmission Date: 20100525
  Serious: Yes (Hospitalization)
  Sender: FDA-Public Use
  Company Number: GB-MYLANLABS-2009S1020241

PATIENT
  Age: 22 Year
  Sex: Male

DRUGS (4)
  1. PARACETAMOL [Suspect]
     Indication: OVERDOSE
  2. METHYLPREDNISOLONE [Suspect]
     Route: 042
  3. AZATHIOPRINE [Suspect]
     Indication: PROPHYLAXIS AGAINST TRANSPLANT REJECTION
  4. TACROLIMUS [Suspect]
     Indication: PROPHYLAXIS AGAINST TRANSPLANT REJECTION

REACTIONS (2)
  - ACUTE HEPATIC FAILURE [None]
  - PANCREATITIS ACUTE [None]
